FAERS Safety Report 23347827 (Version 1)
Quarter: 2023Q4

REPORT INFORMATION
  Report Type: Spontaneous
  Country: US (occurrence: None)
  Receive Date: 20231228
  Receipt Date: 20231228
  Transmission Date: 20240110
  Serious: Yes (Death)
  Sender: FDA-Public Use
  Company Number: None

PATIENT
  Sex: Male

DRUGS (10)
  1. DROXIDOPA [Suspect]
     Active Substance: DROXIDOPA
     Indication: Orthostatic hypotension
     Dosage: OTHER FREQUENCY : 2 CAPS, 3X DAILY;?
     Route: 048
     Dates: start: 20210305
  2. ASPIRIN CHW [Concomitant]
  3. CLOPIDOGREL [Concomitant]
     Active Substance: CLOPIDOGREL BISULFATE
  4. FISH OIL [Concomitant]
     Active Substance: FISH OIL
  5. GLYBURIDE [Concomitant]
     Active Substance: GLYBURIDE
  6. VITAMINS [Concomitant]
     Active Substance: VITAMINS
  7. NORTHERA [Concomitant]
     Active Substance: DROXIDOPA
  8. PRAVASTATIN [Concomitant]
     Active Substance: PRAVASTATIN
  9. ROPINIROLE [Concomitant]
     Active Substance: ROPINIROLE
  10. SUCRALFATE [Concomitant]
     Active Substance: SUCRALFATE

REACTIONS (1)
  - Death [None]
